FAERS Safety Report 20731377 (Version 4)
Quarter: 2022Q3

REPORT INFORMATION
  Report Type: Report from Study
  Country: US (occurrence: US)
  Receive Date: 20220420
  Receipt Date: 20220922
  Transmission Date: 20221027
  Serious: Yes (Hospitalization, Other)
  Sender: FDA-Public Use
  Company Number: US-TAKEDA-2022TUS022324

PATIENT
  Sex: Female
  Weight: 129 kg

DRUGS (29)
  1. GLASSIA [Suspect]
     Active Substance: .ALPHA.1-PROTEINASE INHIBITOR HUMAN
     Indication: Alpha-1 antitrypsin deficiency
     Dosage: 60 MILLIGRAM/KILOGRAM, 1/WEEK
     Route: 042
     Dates: start: 20211216
  2. GLASSIA [Suspect]
     Active Substance: .ALPHA.1-PROTEINASE INHIBITOR HUMAN
     Indication: Alpha-1 antitrypsin deficiency
     Dosage: 60 MILLIGRAM/KILOGRAM, 1/WEEK
     Route: 042
     Dates: start: 20211216
  3. HEPARIN [Concomitant]
     Active Substance: HEPARIN SODIUM
  4. DIPHENHYDRAMINE [Concomitant]
     Active Substance: DIPHENHYDRAMINE
  5. SYMBICORT [Concomitant]
     Active Substance: BUDESONIDE\FORMOTEROL FUMARATE DIHYDRATE
  6. ONDANSETRON HCL [Concomitant]
     Active Substance: ONDANSETRON HYDROCHLORIDE
  7. VITAMIN D3 [Concomitant]
     Active Substance: CHOLECALCIFEROL
  8. SODIUM CHLORIDE [Concomitant]
     Active Substance: SODIUM CHLORIDE
  9. EPINEPHRINE [Concomitant]
     Active Substance: EPINEPHRINE
  10. CALCIUM CITRATE [Concomitant]
     Active Substance: CALCIUM CITRATE
  11. FIBERCON [Concomitant]
     Active Substance: CALCIUM POLYCARBOPHIL
  12. OMEPRAZOLE [Concomitant]
     Active Substance: OMEPRAZOLE
  13. ZYRTEC [Concomitant]
     Active Substance: CETIRIZINE HYDROCHLORIDE
  14. SPIRIVA RESPIMAT [Concomitant]
     Active Substance: TIOTROPIUM BROMIDE
  15. TRAMADOL HCL [Concomitant]
     Active Substance: TRAMADOL HYDROCHLORIDE
  16. GABAPENTIN [Concomitant]
     Active Substance: GABAPENTIN
  17. VITAMINS [Concomitant]
     Active Substance: VITAMINS
  18. SINGULAIR [Concomitant]
     Active Substance: MONTELUKAST SODIUM
  19. OXYGEN [Concomitant]
     Active Substance: OXYGEN
  20. CELEBREX [Concomitant]
     Active Substance: CELECOXIB
  21. ALBUTEROL SULFATE [Concomitant]
     Active Substance: ALBUTEROL SULFATE
  22. DULOXETINE HYDROCHLORIDE [Concomitant]
     Active Substance: DULOXETINE HYDROCHLORIDE
  23. TIZANIDINE HYDROCHLORIDE [Concomitant]
     Active Substance: TIZANIDINE HYDROCHLORIDE
  24. CELECOXIB [Concomitant]
     Active Substance: CELECOXIB
  25. AMBIEN [Concomitant]
     Active Substance: ZOLPIDEM TARTRATE
  26. LISINOPRIL AND HYDROCHLOROTHIAZIDE [Concomitant]
     Active Substance: HYDROCHLOROTHIAZIDE\LISINOPRIL
  27. Lmx [Concomitant]
  28. HERBALS\TURMERIC [Concomitant]
     Active Substance: HERBALS\TURMERIC
  29. TOPAMAX [Concomitant]
     Active Substance: TOPIRAMATE

REACTIONS (4)
  - Knee arthroplasty [Unknown]
  - Gastrointestinal infection [Unknown]
  - Hypotension [Unknown]
  - Dizziness [Unknown]
